FAERS Safety Report 13340736 (Version 1)
Quarter: 2017Q1

REPORT INFORMATION
  Report Type: Spontaneous
  Country: US (occurrence: US)
  Receive Date: 20170315
  Receipt Date: 20170315
  Transmission Date: 20170428
  Serious: Yes (Hospitalization)
  Sender: FDA-Public Use
  Company Number: None

PATIENT
  Age: 59 Year
  Sex: Male
  Weight: 49.8 kg

DRUGS (1)
  1. STELARA [Suspect]
     Active Substance: USTEKINUMAB
     Indication: HIDRADENITIS
     Dosage: FREQUENCY - Q12WEEKLY
     Route: 058
     Dates: start: 20141203, end: 20170207

REACTIONS (3)
  - Abscess drainage [None]
  - Abdominal abscess [None]
  - Treatment failure [None]

NARRATIVE: CASE EVENT DATE: 20170301
